FAERS Safety Report 7808240-6 (Version None)
Quarter: 2011Q4

REPORT INFORMATION
  Report Type: 
  Country: None (occurrence: None)
  Receive Date: 20111012
  Receipt Date: 20110929
  Transmission Date: 20120403
  Serious: Yes (Death)
  Sender: FDA-Public Use
  Company Number: US-BRISTOL-MYERS SQUIBB COMPANY-16088759

PATIENT
  Age: 81 Year
  Sex: Male
  Weight: 57 kg

DRUGS (9)
  1. ZOFRAN [Concomitant]
     Dates: start: 20110811
  2. PEMETREXED DISODIUM [Suspect]
     Indication: NON-SMALL CELL LUNG CANCER
     Dosage: VIAL,1 OF 3 WEEK CYCLE
     Route: 042
     Dates: start: 20110818, end: 20110818
  3. FOLIC ACID [Concomitant]
     Dates: start: 20110811
  4. RAMUCIRUMAB [Suspect]
     Indication: NON-SMALL CELL LUNG CANCER
     Dosage: 1 OF 3 WEEK CYCLE
     Route: 042
     Dates: start: 20110818, end: 20110818
  5. VICODIN [Concomitant]
     Dates: start: 20110804
  6. MS CONTIN [Concomitant]
     Dates: start: 20110811
  7. DEXAMETHASONE [Concomitant]
     Dates: start: 20110817, end: 20110819
  8. CARBOPLATIN [Suspect]
     Indication: NON-SMALL CELL LUNG CANCER
     Dosage: 1 DF = AUC 6 DAY 1 OF 3 WEEK CYCLE
     Route: 065
     Dates: start: 20110818, end: 20110818
  9. VITAMIN B-12 [Concomitant]
     Dates: start: 20110811

REACTIONS (1)
  - SUDDEN DEATH [None]
